FAERS Safety Report 6930622-5 (Version None)
Quarter: 2010Q3

REPORT INFORMATION
  Report Type: 
  Country: None (occurrence: None)
  Receive Date: 20100818
  Receipt Date: 20100811
  Transmission Date: 20110219
  Serious: Yes (Death)
  Sender: FDA-Public Use
  Company Number: US-GENZYME-CLOF-1001117

PATIENT
  Sex: Male
  Weight: 90.249 kg

DRUGS (8)
  1. CLOLAR [Suspect]
     Indication: MYELODYSPLASTIC SYNDROME
     Dosage: 9 MG, QDX5
     Route: 042
     Dates: start: 20100125, end: 20100129
  2. NEULASTA [Concomitant]
     Indication: PROPHYLAXIS
     Dosage: 6 MG, ONCE
     Route: 058
     Dates: start: 20100205, end: 20100205
  3. LEVAQUIN [Concomitant]
     Indication: INFECTION PROPHYLAXIS
     Dosage: 500 MG, QD
     Route: 048
     Dates: start: 20100129, end: 20100205
  4. SYNTHROID [Concomitant]
     Indication: HYPOTHYROIDISM
     Dosage: 125 MCG, QD
     Route: 048
     Dates: end: 20100212
  5. TOPROL-XL [Concomitant]
     Indication: HYPERTENSION
     Dosage: 50 MG, QD
     Route: 048
     Dates: end: 20100212
  6. VYTORIN [Concomitant]
     Indication: HYPERLIPIDAEMIA
     Dosage: 1 TAB QD
     Route: 048
     Dates: end: 20100212
  7. PROTONIX [Concomitant]
     Indication: GASTROOESOPHAGEAL REFLUX DISEASE
     Dosage: 40 MG, QD
     Route: 048
     Dates: start: 20091204, end: 20100205
  8. AMBIEN [Concomitant]
     Indication: INSOMNIA
     Dosage: 10 MG, PRN
     Route: 048
     Dates: start: 20090720, end: 20100212

REACTIONS (2)
  - HAEMORRHAGE INTRACRANIAL [None]
  - PANCYTOPENIA [None]
